FAERS Safety Report 7822809-4 (Version None)
Quarter: 2011Q4

REPORT INFORMATION
  Report Type: 
  Country: None (occurrence: None)
  Receive Date: 20111018
  Receipt Date: 20100928
  Transmission Date: 20120403
  Serious: No
  Sender: FDA-Public Use
  Company Number: US-ASTRAZENECA-2010SE45731

PATIENT
  Age: 81 Year
  Sex: Female

DRUGS (2)
  1. VITAMIN D [Concomitant]
  2. SYMBICORT [Suspect]
     Dosage: FOR APPROXIMATELY 15 DOSES, UNKNOWN FREQUENCY.
     Route: 055
     Dates: end: 20100927

REACTIONS (5)
  - THYROID DISORDER [None]
  - MUSCLE STRAIN [None]
  - OSTEOPOROSIS [None]
  - DYSPHONIA [None]
  - THROAT IRRITATION [None]
